FAERS Safety Report 21390359 (Version 3)
Quarter: 2022Q4

REPORT INFORMATION
  Report Type: Report from Study
  Country: US (occurrence: US)
  Receive Date: 20220929
  Receipt Date: 20221027
  Transmission Date: 20230113
  Serious: Yes (Hospitalization)
  Sender: FDA-Public Use
  Company Number: US-TAKEDA-2022TUS068608

PATIENT
  Sex: Female
  Weight: 82 kg

DRUGS (3)
  1. MARIBAVIR [Suspect]
     Active Substance: MARIBAVIR
     Indication: Cytomegalovirus infection
     Dosage: 400 MILLIGRAM, BID
     Route: 065
  2. MARIBAVIR [Suspect]
     Active Substance: MARIBAVIR
     Dosage: 200 MILLIGRAM, BID
     Route: 048
     Dates: start: 20220815, end: 20220923
  3. ACYCLOVIR [Concomitant]
     Active Substance: ACYCLOVIR
     Dosage: UNK
     Route: 065

REACTIONS (3)
  - Hospitalisation [Unknown]
  - Taste disorder [Unknown]
  - Incorrect dose administered [Unknown]
